FAERS Safety Report 5695145-2 (Version None)
Quarter: 2008Q2

REPORT INFORMATION
  Report Type: 
  Country: None (occurrence: None)
  Receive Date: 20080404
  Receipt Date: 20080325
  Transmission Date: 20081010
  Serious: Yes (Other)
  Sender: FDA-Public Use
  Company Number: US-PFIZER INC-2008026957

PATIENT
  Sex: Female
  Weight: 58 kg

DRUGS (9)
  1. AROMASIN [Suspect]
     Indication: BREAST CANCER
     Route: 048
  2. INDERAL LA [Concomitant]
  3. IMITREX [Concomitant]
     Dosage: TEXT:AS NEEDED PRN
  4. FLUDROCORTISONE ACETATE [Concomitant]
  5. NEURONTIN [Concomitant]
  6. VITAMIN B-12 [Concomitant]
     Route: 048
  7. VITAMIN CAP [Concomitant]
  8. CALTRATE [Concomitant]
  9. ZETIA [Concomitant]

REACTIONS (2)
  - HEADACHE [None]
  - MIGRAINE [None]
